FAERS Safety Report 6692138-3 (Version None)
Quarter: 2010Q2

REPORT INFORMATION
  Report Type: 
  Country: None (occurrence: None)
  Receive Date: 20100422
  Receipt Date: 20090810
  Transmission Date: 20101027
  Serious: No
  Sender: FDA-Public Use
  Company Number: US-ASTRAZENECA-2009SE08220

PATIENT

DRUGS (2)
  1. METOPROLOL SUCCINATE [Suspect]
     Dosage: TOPROL XL
     Route: 048
  2. METOPROLOL SUCCINATE [Suspect]
     Dosage: GENERIC VERSION

REACTIONS (5)
  - CHEST DISCOMFORT [None]
  - OEDEMA PERIPHERAL [None]
  - PHOTOSENSITIVITY REACTION [None]
  - RASH [None]
  - SINUS BRADYCARDIA [None]
